FAERS Safety Report 21322524 (Version 5)
Quarter: 2022Q4

REPORT INFORMATION
  Report Type: Spontaneous
  Country: JP (occurrence: JP)
  Receive Date: 20220912
  Receipt Date: 20221006
  Transmission Date: 20230112
  Serious: Yes (Death, Other)
  Sender: FDA-Public Use
  Company Number: JP-GSKJP-JP2022JPN130238AA

PATIENT

DRUGS (7)
  1. SOTROVIMAB [Suspect]
     Active Substance: SOTROVIMAB
     Indication: COVID-19
     Dosage: 500 MG/50ML/30MIN, QD
     Dates: start: 20220902, end: 20220902
  2. AMINO ACIDS\DEXTROSE\ELECTROLYTES NOS\MINERALS\VITAMINS [Concomitant]
     Active Substance: AMINO ACIDS\DEXTROSE\ELECTROLYTES NOS\MINERALS\VITAMINS
     Dosage: UNK
  3. HARTMANN-G3 [Concomitant]
     Dosage: UNK
  4. FUROSEMIDE [Concomitant]
     Active Substance: FUROSEMIDE
     Indication: Cardiac failure
     Dosage: 10 MG/DAY, 1/2 A
     Route: 042
     Dates: start: 20210910
  5. COMIRNATY [Concomitant]
     Active Substance: TOZINAMERAN
     Indication: COVID-19 prophylaxis
     Dosage: 0.3 ML
     Route: 030
     Dates: start: 20220809
  6. BISOPROLOL [Concomitant]
     Active Substance: BISOPROLOL
     Indication: Hypertension
     Dosage: 8 MG/DAY
     Route: 003
     Dates: start: 20220324
  7. ACETAMINOPHEN [Concomitant]
     Active Substance: ACETAMINOPHEN
     Indication: Pyrexia
     Dosage: 500 MG/DAY
     Route: 041
     Dates: start: 20220901, end: 20220901

REACTIONS (9)
  - Cardiac failure [Fatal]
  - COVID-19 [Fatal]
  - Altered state of consciousness [Unknown]
  - Cardiac arrest [Unknown]
  - Pallor [Unknown]
  - Peripheral coldness [Unknown]
  - Pulse absent [Unknown]
  - Ischaemia [Unknown]
  - Drug ineffective [Unknown]
